FAERS Safety Report 6030201-0 (Version None)
Quarter: 2009Q1

REPORT INFORMATION
  Report Type: 
  Country: None (occurrence: None)
  Receive Date: 20090107
  Receipt Date: 20080821
  Transmission Date: 20090719
  Serious: No
  Sender: FDA-Public Use
  Company Number: US-BAYER-200813503BCC

PATIENT
  Age: 41 Year
  Sex: Female
  Weight: 77 kg

DRUGS (5)
  1. MIDOL [Suspect]
     Indication: PREMENSTRUAL SYNDROME
     Route: 048
  2. ONE A DAY WOMEN'S [Concomitant]
  3. CALTRATE D [Concomitant]
  4. ASCORBIC ACID [Concomitant]
  5. ZOMIG [Concomitant]

REACTIONS (1)
  - PREMENSTRUAL SYNDROME [None]
